FAERS Safety Report 6441887-0 (Version None)
Quarter: 2009Q4

REPORT INFORMATION
  Report Type: 
  Country: None (occurrence: None)
  Receive Date: 20091116
  Receipt Date: 20091113
  Transmission Date: 20100525
  Serious: Yes (Other)
  Sender: FDA-Public Use
  Company Number: CHPA2009US22053

PATIENT
  Age: 81 Year
  Sex: Female
  Weight: 63.039 kg

DRUGS (1)
  1. EXCEDRIN TENSION HEADACHE(NCH) [Suspect]
     Indication: GINGIVAL DISORDER
     Dosage: UNK, UNK
     Route: 048
     Dates: end: 20090101

REACTIONS (3)
  - ABNORMAL DREAMS [None]
  - HALLUCINATION [None]
  - OFF LABEL USE [None]
